FAERS Safety Report 6741586-1 (Version None)
Quarter: 2010Q2

REPORT INFORMATION
  Report Type: 
  Country: None (occurrence: None)
  Receive Date: 20100526
  Receipt Date: 20100518
  Transmission Date: 20101027
  Serious: Yes (Hospitalization)
  Sender: FDA-Public Use
  Company Number: US-ABBOTT-10P-163-0645761-00

PATIENT
  Sex: Female
  Weight: 85.352 kg

DRUGS (11)
  1. HUMIRA [Suspect]
     Indication: CROHN'S DISEASE
  2. REMICADE [Suspect]
     Indication: CROHN'S DISEASE
     Route: 042
     Dates: start: 20020219
  3. REMICADE [Suspect]
     Dates: start: 20021114
  4. REMICADE [Suspect]
     Dates: start: 20021127
  5. REMICADE [Suspect]
     Dates: start: 20021230
  6. CERTOLIZUMAB PEGOL [Suspect]
     Indication: CROHN'S DISEASE
  7. MERCAPTOPURINE [Concomitant]
     Indication: DRUG USE FOR UNKNOWN INDICATION
  8. MESALAMINE [Concomitant]
     Indication: CROHN'S DISEASE
  9. ANALGESICS [Concomitant]
     Indication: CROHN'S DISEASE
  10. ANTIDEPRESSANTS [Concomitant]
     Indication: CROHN'S DISEASE
  11. PREDNISONE TAB [Concomitant]
     Indication: CROHN'S DISEASE

REACTIONS (2)
  - CROHN'S DISEASE [None]
  - MIGRAINE [None]
